FAERS Safety Report 12177533 (Version 1)
Quarter: 2016Q1

REPORT INFORMATION
  Report Type: Other
  Country: US (occurrence: US)
  Receive Date: 20160314
  Receipt Date: 20160314
  Transmission Date: 20160526
  Serious: Yes (Hospitalization, Other)
  Sender: FDA-Public Use
  Company Number: US-DEP_13777_2016

PATIENT
  Age: 62 Year
  Sex: Male
  Weight: 97 kg

DRUGS (14)
  1. GABAPENTIN. [Concomitant]
     Active Substance: GABAPENTIN
     Indication: PAIN
     Route: 048
     Dates: start: 201603
  2. NUCYNTA [Suspect]
     Active Substance: TAPENTADOL HYDROCHLORIDE
     Indication: NEUROPATHY PERIPHERAL
     Dosage: ONE TABLET EVERY 4 TO 6 HOURS PRN
     Route: 048
     Dates: start: 20151223, end: 20151224
  3. ATENOLOL. [Concomitant]
     Active Substance: ATENOLOL
     Indication: HYPERTENSION
     Route: 048
  4. GABAPENTIN. [Concomitant]
     Active Substance: GABAPENTIN
     Route: 048
     Dates: start: 201601, end: 201603
  5. NUCYNTA [Suspect]
     Active Substance: TAPENTADOL HYDROCHLORIDE
     Indication: BONE PAIN
     Dosage: ONE TABLET EVERY 4 TO 6 HOURS PRN
     Route: 048
     Dates: start: 20151223, end: 20151224
  6. NUCYNTA ER [Suspect]
     Active Substance: TAPENTADOL HYDROCHLORIDE
     Indication: BONE PAIN
     Route: 048
     Dates: start: 201512, end: 20160302
  7. FLOMAX [Concomitant]
     Active Substance: TAMSULOSIN HYDROCHLORIDE
     Indication: PRODUCT USED FOR UNKNOWN INDICATION
     Route: 048
  8. GABAPENTIN. [Concomitant]
     Active Substance: GABAPENTIN
     Indication: NEUROPATHY PERIPHERAL
     Route: 048
     Dates: end: 201601
  9. STEROID [Suspect]
     Active Substance: UNSPECIFIED INGREDIENT
     Indication: UPPER RESPIRATORY TRACT INFECTION
     Dosage: PER PRESCRIBED TITRATION SCHEDULE
     Dates: start: 20151226, end: 20160112
  10. NUCYNTA [Suspect]
     Active Substance: TAPENTADOL HYDROCHLORIDE
     Indication: PAIN IN EXTREMITY
     Dosage: ONE TABLET EVERY 4 TO 6 HOURS PRN
     Route: 048
     Dates: start: 20151223, end: 20151224
  11. NUCYNTA ER [Suspect]
     Active Substance: TAPENTADOL HYDROCHLORIDE
     Indication: PAIN IN EXTREMITY
     Route: 048
     Dates: start: 201512, end: 20160302
  12. VACCINE [Concomitant]
     Active Substance: UNSPECIFIED INGREDIENT
     Indication: IMMUNE SYSTEM DISORDER
     Dosage: DF
     Dates: start: 20160115
  13. GENERIC CYMBALTA [Concomitant]
     Active Substance: DULOXETINE HYDROCHLORIDE
     Indication: DEPRESSION
     Route: 048
  14. NUCYNTA ER [Suspect]
     Active Substance: TAPENTADOL HYDROCHLORIDE
     Indication: NEUROPATHY PERIPHERAL
     Route: 048
     Dates: start: 201512, end: 20160302

REACTIONS (8)
  - Depression suicidal [Recovered/Resolved]
  - Upper respiratory tract infection [Recovered/Resolved]
  - Respiratory muscle weakness [Recovered/Resolved]
  - Product quality issue [Recovered/Resolved]
  - Drug dose titration not performed [Recovered/Resolved]
  - Pharyngeal disorder [Recovered/Resolved]
  - Depression [Recovered/Resolved]
  - Drug effect decreased [Recovered/Resolved]

NARRATIVE: CASE EVENT DATE: 201512
